FAERS Safety Report 21245128 (Version 1)
Quarter: 2022Q3

REPORT INFORMATION
  Report Type: Spontaneous
  Country: FR (occurrence: FR)
  Receive Date: 20220823
  Receipt Date: 20220823
  Transmission Date: 20221027
  Serious: No
  Sender: FDA-Public Use
  Company Number: FR-UCBSA-2022049359

PATIENT
  Sex: Female

DRUGS (1)
  1. NEUPRO [Suspect]
     Active Substance: ROTIGOTINE
     Indication: Product used for unknown indication
     Dosage: 2MG STRENGTH
     Route: 062

REACTIONS (3)
  - Pain [Unknown]
  - Product adhesion issue [Unknown]
  - Drug ineffective [Unknown]
